FAERS Safety Report 5611318-9 (Version None)
Quarter: 2008Q1

REPORT INFORMATION
  Report Type: 
  Country: None (occurrence: None)
  Receive Date: 20080201
  Receipt Date: 20080122
  Transmission Date: 20080703
  Serious: Yes (Other)
  Sender: FDA-Public Use
  Company Number: US-PFIZER INC-2007095690

PATIENT
  Sex: Male
  Weight: 76.2 kg

DRUGS (2)
  1. NEURONTIN [Suspect]
     Indication: RESTLESS LEGS SYNDROME
     Route: 048
  2. AMBIEN [Interacting]
     Indication: INSOMNIA
     Route: 048

REACTIONS (2)
  - CARDIAC FLUTTER [None]
  - DRUG INTERACTION [None]
